FAERS Safety Report 11790737 (Version 2)
Quarter: 2016Q1

REPORT INFORMATION
  Report Type: Spontaneous
  Country: US (occurrence: US)
  Receive Date: 20151201
  Receipt Date: 20160111
  Transmission Date: 20160525
  Serious: No
  Sender: FDA-Public Use
  Company Number: US-PFIZER INC-2014306190

PATIENT
  Age: 80 Year
  Sex: Female

DRUGS (34)
  1. ZANTAC [Concomitant]
     Active Substance: RANITIDINE HYDROCHLORIDE
     Indication: GASTROOESOPHAGEAL REFLUX DISEASE
     Dosage: 150 MG, 2X/DAY
  2. METOLAZONE. [Concomitant]
     Active Substance: METOLAZONE
     Indication: FLUID RETENTION
     Dosage: 5 MG, 2X/DAY WHEN TAKING BUMEX
  3. VICODIN [Concomitant]
     Active Substance: ACETAMINOPHEN\HYDROCODONE BITARTRATE
     Indication: PAIN
     Dosage: UNK, AS NEEDED (HYDROCODONE BITARTRATE: 10, PARACETAMOL:325)(TAKING 4-6 PER DAY)
  4. HUMALOG [Concomitant]
     Active Substance: INSULIN LISPRO
     Dosage: UNK, AS NEEDED (CURRENTLY TAKING 40-50 UNITS PER DAY)
  5. CARDIZEM [Concomitant]
     Active Substance: DILTIAZEM HYDROCHLORIDE
     Indication: HEART RATE ABNORMAL
  6. NEURONTIN [Concomitant]
     Active Substance: GABAPENTIN
     Indication: DIABETIC NEUROPATHY
     Dosage: 300 MG, UNK (TAKING 1 TAB SIX TIMES PER DAY)
  7. VITAMIN C [Concomitant]
     Active Substance: ASCORBIC ACID
     Dosage: 500 MG, 1X/DAY
  8. VIT B-6 [Concomitant]
     Dosage: 100 MG, 1X/DAY
  9. MIRALAX [Concomitant]
     Active Substance: POLYETHYLENE GLYCOL 3350
     Dosage: UNK, AS NEEDED
  10. TAMBOCOR [Concomitant]
     Active Substance: FLECAINIDE ACETATE
     Indication: ATRIAL FIBRILLATION
     Dosage: 100 MG, 3X/DAY
  11. COZAAR [Concomitant]
     Active Substance: LOSARTAN POTASSIUM
     Indication: BLOOD PRESSURE ABNORMAL
     Dosage: 100 MG, 1X/DAY
  12. HYDROXYZINE HYDROCHLORIDE. [Concomitant]
     Active Substance: HYDROXYZINE HYDROCHLORIDE
     Indication: DRUG HYPERSENSITIVITY
  13. PNEUMOCOCCAL VACCINE POLYVALENT NOS [Concomitant]
     Active Substance: PNEUMOCOCCAL VACCINE POLYVALENT
     Dosage: UNK
     Dates: start: 20150717
  14. ZOLOFT [Concomitant]
     Active Substance: SERTRALINE HYDROCHLORIDE
     Indication: MOOD SWINGS
     Dosage: 100 MG, 1X/DAY
  15. HYDROXYZINE HYDROCHLORIDE. [Concomitant]
     Active Substance: HYDROXYZINE HYDROCHLORIDE
     Indication: PRURITUS
     Dosage: 25 MG, 3X/DAY
  16. BUMEX [Concomitant]
     Active Substance: BUMETANIDE
     Indication: FLUID RETENTION
     Dosage: 2 MG, AS NEEDED (TAKING TWO PER DAY AS NEEDED)
  17. MOTILIUM [Concomitant]
     Active Substance: DOMPERIDONE
     Indication: IMPAIRED GASTRIC EMPTYING
     Dosage: 10 MG, 4X/DAY
  18. LANTUS [Concomitant]
     Active Substance: INSULIN GLARGINE
     Dosage: UNK, 1X/DAY (CURRENTLY TAKING 20-24 UNITS PER DAY)
  19. BUMEX [Concomitant]
     Active Substance: BUMETANIDE
     Dosage: 2 MG, 2X/DAY
  20. AMBIEN [Concomitant]
     Active Substance: ZOLPIDEM TARTRATE
     Indication: SLEEP DISORDER
     Dosage: 10 MG, 1X/DAY
  21. FOLIC ACID. [Concomitant]
     Active Substance: FOLIC ACID
     Dosage: UNK, 1X/DAY
  22. NEXIUM [Concomitant]
     Active Substance: ESOMEPRAZOLE MAGNESIUM
     Indication: PAIN
     Dosage: 20 MG, 1X/DAY
  23. ESTRACE [Concomitant]
     Active Substance: ESTRADIOL
     Indication: HORMONE REPLACEMENT THERAPY
     Dosage: 1 MG, 1X/DAY
  24. VITAMIN D [Concomitant]
     Active Substance: CHOLECALCIFEROL
     Dosage: 5000 IU, 2X/DAY
  25. VIT B 12 [Concomitant]
     Dosage: 1000 UG, 2X/DAY
  26. KLOR-CON M20 [Concomitant]
     Active Substance: POTASSIUM CHLORIDE
     Dosage: 1 DF, WHEN TAKING BUMEX + METOLAZONE
  27. VICODIN [Concomitant]
     Active Substance: ACETAMINOPHEN\HYDROCODONE BITARTRATE
     Dosage: UNK, AS NEEDED ( (HYDROCODONE BITARTRATE: 7.5, PARACETAMOL: 500) )
  28. NEURONTIN [Concomitant]
     Active Substance: GABAPENTIN
     Dosage: 300 MG, 3X/DAY
  29. REVATIO [Suspect]
     Active Substance: SILDENAFIL CITRATE
     Indication: PULMONARY ARTERIAL HYPERTENSION
     Dosage: 20 MG, 3X/DAY
  30. SOTALOL. [Concomitant]
     Active Substance: SOTALOL
     Indication: ATRIAL FIBRILLATION
     Dosage: 80 MG, 2X/DAY
  31. CARDIZEM [Concomitant]
     Active Substance: DILTIAZEM HYDROCHLORIDE
     Indication: BLOOD PRESSURE ABNORMAL
     Dosage: 240 MG, 1X/DAY
  32. XANAX [Concomitant]
     Active Substance: ALPRAZOLAM
     Indication: MOOD ALTERED
     Dosage: 0.05 MG, AS NEEDED
  33. METHOCARBAMOL. [Concomitant]
     Active Substance: METHOCARBAMOL
     Indication: MUSCLE RELAXANT THERAPY
     Dosage: UNK, AS NEEDED (ABOUT 3 PER DAY)
  34. DESONIDE. [Concomitant]
     Active Substance: DESONIDE
     Indication: SKIN DISORDER
     Dosage: 0.05 %, UNK

REACTIONS (1)
  - Drug ineffective [Unknown]
